FAERS Safety Report 15716337 (Version 1)
Quarter: 2018Q4

REPORT INFORMATION
  Report Type: Report from Study
  Country: US (occurrence: US)
  Receive Date: 20181213
  Receipt Date: 20181213
  Transmission Date: 20190205
  Serious: Yes (Hospitalization)
  Sender: FDA-Public Use
  Company Number: US-BIOGEN-2018BI00671003

PATIENT
  Age: 69 Year
  Sex: Male

DRUGS (1)
  1. TYSABRI [Suspect]
     Active Substance: NATALIZUMAB
     Indication: MULTIPLE SCLEROSIS
     Route: 065
     Dates: start: 20101006

REACTIONS (5)
  - Diabetic neuropathy [Unknown]
  - Iron deficiency [Unknown]
  - Sarcoidosis [Unknown]
  - Nephrolithiasis [Unknown]
  - Escherichia infection [Unknown]

NARRATIVE: CASE EVENT DATE: 201811
